FAERS Safety Report 6859435-X (Version None)
Quarter: 2010Q3

REPORT INFORMATION
  Report Type: 
  Country: None (occurrence: None)
  Receive Date: 20100719
  Receipt Date: 20080226
  Transmission Date: 20110219
  Serious: No
  Sender: FDA-Public Use
  Company Number: US-PFIZER INC-2008020205

PATIENT
  Sex: Female
  Weight: 72.7 kg

DRUGS (11)
  1. CHANTIX [Suspect]
     Indication: SMOKING CESSATION THERAPY
     Dates: start: 20080220, end: 20080224
  2. DEPAKOTE [Concomitant]
  3. PAXIL [Concomitant]
  4. KLONOPIN [Concomitant]
  5. RISPERDAL [Concomitant]
  6. SYNTHROID [Concomitant]
  7. PREMARIN [Concomitant]
  8. VOLTAREN [Concomitant]
  9. NEURONTIN [Concomitant]
  10. VITAMINS [Concomitant]
  11. ALEVE (CAPLET) [Concomitant]

REACTIONS (7)
  - ABNORMAL BEHAVIOUR [None]
  - AGITATION [None]
  - ANGER [None]
  - CONSTIPATION [None]
  - EMOTIONAL DISORDER [None]
  - GASTRIC DISORDER [None]
  - NAUSEA [None]
